FAERS Safety Report 7395066 (Version 2)
Quarter: 2014Q2

REPORT INFORMATION
  Report Type: Spontaneous
  Country: US (occurrence: None)
  Receive Date: 20100513
  Receipt Date: 20140425
  Transmission Date: 20141212
  Serious: Yes (Other)
  Sender: FDA-Public Use
  Company Number: 2010S1002630

PATIENT
  Age: 68 Year
  Sex: Female
  Weight: 51.26 kg

DRUGS (7)
  1. FLEET PHOSPHO-SODA ORAL SALINE LAXATIVE, GINGER-LEMON FLAVOR (ORAL SOLUTION) [Suspect]
     Indication: COLONOSCOPY
     Dosage: PO
     Route: 048
     Dates: start: 20060421, end: 20060421
  2. PREMARIN [Concomitant]
  3. SYNTHROID [Concomitant]
  4. CALCIUM (CALCIUM) [Concomitant]
  5. ADVIL [Concomitant]
  6. VITAMIN D (ERGOCALCIFEROL) [Concomitant]
  7. LOTRISONE (BETAMETHASONE DIPROPIONTE, CLOTRIMAZOLE) [Concomitant]

REACTIONS (28)
  - Anaemia [None]
  - Renal hypertension [None]
  - Renal failure chronic [None]
  - Malaise [None]
  - Abdominal pain [None]
  - Abdominal distension [None]
  - Nausea [None]
  - Vomiting [None]
  - Headache [None]
  - Dizziness [None]
  - Ear discomfort [None]
  - Decreased appetite [None]
  - Nephrogenic anaemia [None]
  - Hepatic cyst [None]
  - Haemangioma of liver [None]
  - Tubulointerstitial nephritis [None]
  - Feeling abnormal [None]
  - Tremor [None]
  - Disorientation [None]
  - Vision blurred [None]
  - Headache [None]
  - Neck pain [None]
  - Oropharyngeal discomfort [None]
  - Peripheral swelling [None]
  - Myalgia [None]
  - Frustration [None]
  - Hypertonic bladder [None]
  - Cystitis interstitial [None]
